FAERS Safety Report 16100787 (Version 1)
Quarter: 2019Q1

REPORT INFORMATION
  Report Type: Spontaneous
  Country: US (occurrence: US)
  Receive Date: 20190321
  Receipt Date: 20190321
  Transmission Date: 20190418
  Serious: No
  Sender: FDA-Public Use
  Company Number: US-AMREGENT-20180943

PATIENT
  Age: 62 Year
  Sex: Female

DRUGS (2)
  1. DEXFERRUM [Suspect]
     Active Substance: IRON DEXTRAN
     Dosage: UNKNOWN
     Route: 065
  2. AUSTEDO [Concomitant]
     Active Substance: DEUTETRABENAZINE
     Dosage: UNKNOWN
     Route: 065
     Dates: start: 20180419

REACTIONS (1)
  - Ill-defined disorder [Unknown]

NARRATIVE: CASE EVENT DATE: 20180502
